FAERS Safety Report 13504690 (Version 2)
Quarter: 2017Q3

REPORT INFORMATION
  Report Type: Spontaneous
  Country: US (occurrence: US)
  Receive Date: 20170502
  Receipt Date: 20170724
  Transmission Date: 20171127
  Serious: No
  Sender: FDA-Public Use
  Company Number: US-IMPAX LABORATORIES, INC-2017-IPXL-01016

PATIENT
  Age: 70 Year
  Sex: Male
  Weight: 154 kg

DRUGS (17)
  1. RYTARY [Suspect]
     Active Substance: CARBIDOPA\LEVODOPA
     Dosage: 23.75/95MG, THREE CAPSULES, THREE TIMES DAILY
     Route: 048
     Dates: start: 2017
  2. MULTIVITAMIN [Concomitant]
     Active Substance: VITAMINS
     Indication: PRODUCT USED FOR UNKNOWN INDICATION
     Dosage: UNK
     Route: 065
  3. PERFOROMIST [Concomitant]
     Active Substance: FORMOTEROL FUMARATE DIHYDRATE
     Indication: DYSPNOEA
     Dosage: 20 ?G, UNK
     Route: 065
  4. SULFASALAZINE. [Concomitant]
     Active Substance: SULFASALAZINE
     Indication: CROHN^S DISEASE
     Dosage: 500 MG, UNK
     Route: 065
  5. TAMSULOSIN [Concomitant]
     Active Substance: TAMSULOSIN
     Indication: DYSURIA
     Dosage: 0.4 MG, UNK
     Route: 065
  6. BUDESONIDE. [Concomitant]
     Active Substance: BUDESONIDE
     Indication: DYSPNOEA
     Dosage: 0.25 MG, UNK
     Route: 065
  7. RYTARY [Suspect]
     Active Substance: CARBIDOPA\LEVODOPA
     Indication: PARKINSON^S DISEASE
     Dosage: 23.75/95MG, TWO CAPSULES, THREE TIMES DAILY
     Route: 048
     Dates: start: 2017
  8. PRAVASTATIN. [Concomitant]
     Active Substance: PRAVASTATIN
     Indication: BLOOD CHOLESTEROL INCREASED
     Dosage: 80 MG, UNK
     Route: 065
  9. MELOXICAM. [Concomitant]
     Active Substance: MELOXICAM
     Indication: ARTHRITIS
     Dosage: 15 MG, UNK
     Route: 065
  10. PRILOSEC [Concomitant]
     Active Substance: OMEPRAZOLE MAGNESIUM
     Indication: PRODUCT USED FOR UNKNOWN INDICATION
     Dosage: 20 MG, UNK
     Route: 065
  11. AZITHROMYCIN ANHYDROUS. [Concomitant]
     Active Substance: AZITHROMYCIN ANHYDROUS
     Indication: SINUS DISORDER
     Dosage: 250 MG, UNK
     Route: 065
  12. HYDRALAZINE [Concomitant]
     Active Substance: HYDRALAZINE HYDROCHLORIDE
     Indication: HYPERTENSION
     Dosage: 100 MG, UNK
     Route: 065
  13. ASPIRIN. [Concomitant]
     Active Substance: ASPIRIN
     Indication: PRODUCT USED FOR UNKNOWN INDICATION
     Dosage: 81 MG, UNK
     Route: 065
  14. LISINOPRIL. [Concomitant]
     Active Substance: LISINOPRIL
     Indication: HYPERTENSION
     Dosage: UNK
     Route: 065
  15. CLONIDINE. [Concomitant]
     Active Substance: CLONIDINE
     Indication: HYPERTENSION
     Dosage: 0.3 MG, UNK
     Route: 065
  16. ATENOLOL. [Concomitant]
     Active Substance: ATENOLOL
     Indication: HYPERTENSION
     Dosage: 80 MG, UNK
     Route: 065
  17. METFORMIN [Concomitant]
     Active Substance: METFORMIN HYDROCHLORIDE
     Indication: DIABETES MELLITUS
     Dosage: 1000 MG, UNK
     Route: 065

REACTIONS (2)
  - Balance disorder [Not Recovered/Not Resolved]
  - Drug effect incomplete [Unknown]

NARRATIVE: CASE EVENT DATE: 2017
